FAERS Safety Report 25444634 (Version 1)
Quarter: 2025Q2

REPORT INFORMATION
  Report Type: Spontaneous
  Country: IT (occurrence: IT)
  Receive Date: 20250617
  Receipt Date: 20250617
  Transmission Date: 20250716
  Serious: Yes (Congenital Anomaly, Other)
  Sender: ASCENT PHARMACEUTICALS INC
  Company Number: IT-ASCENT-2025ASLIT00110

PATIENT
  Sex: Female

DRUGS (3)
  1. LEVOTHYROXINE SODIUM [Suspect]
     Active Substance: LEVOTHYROXINE SODIUM
     Indication: Congenital hypothyroidism
     Route: 065
  2. LEVOTHYROXINE SODIUM [Suspect]
     Active Substance: LEVOTHYROXINE SODIUM
     Route: 065
  3. LOCUST BEAN GUM [Suspect]
     Active Substance: LOCUST BEAN GUM
     Indication: Gastrooesophageal reflux disease
     Dosage: FOR 7 MEALS A DAY
     Route: 065

REACTIONS (3)
  - Congenital hypothyroidism [Recovered/Resolved]
  - Condition aggravated [Recovered/Resolved]
  - Food interaction [Unknown]
